FAERS Safety Report 4279146-7 (Version None)
Quarter: 2004Q1

REPORT INFORMATION
  Report Type: 
  Country: None (occurrence: None)
  Receive Date: 20040126
  Receipt Date: 20040126
  Transmission Date: 20041129
  Serious: Yes (Life-Threatening)
  Sender: FDA-Public Use
  Company Number: None

PATIENT
  Age: 85 Year
  Sex: Male
  Weight: 65.7716 kg

DRUGS (4)
  1. TRIAMTERENE AND HYDROCHLOROTHIAZIDE [Suspect]
     Indication: BLOOD PRESSURE
     Dosage: 1 QD (DAILY)
     Dates: start: 20021004
  2. ZOLOFT [Concomitant]
  3. PREVACID [Concomitant]
  4. LIPITOR [Concomitant]

REACTIONS (2)
  - HYPONATRAEMIA [None]
  - SOMNOLENCE [None]
